FAERS Safety Report 5764332-7 (Version None)
Quarter: 2008Q2

REPORT INFORMATION
  Report Type: 
  Country: None (occurrence: None)
  Receive Date: 20080610
  Receipt Date: 20071129
  Transmission Date: 20081010
  Serious: No
  Sender: FDA-Public Use
  Company Number: US-BOEHRINGER INGELHEIM GMBH, GERMANY-2007-BP-07317BP

PATIENT
  Sex: Male
  Weight: 95 kg

DRUGS (15)
  1. MIRAPEX [Suspect]
     Indication: PARKINSON'S DISEASE
     Dates: start: 20020809
  2. PROPYLTHIOURACIL [Concomitant]
     Indication: HYPERTHYROIDISM
     Dates: start: 19990101
  3. ASPIRIN [Concomitant]
  4. COUMADIN [Concomitant]
     Indication: ATRIAL FIBRILLATION
  5. PROVIGIL [Concomitant]
     Indication: PARKINSON'S DISEASE
     Dates: start: 20040101
  6. ELDEPRYL [Concomitant]
     Indication: PARKINSON'S DISEASE
     Dates: start: 20011101
  7. SELEGILINE HCL [Concomitant]
     Indication: PARKINSON'S DISEASE
     Dates: start: 20030101
  8. AMANTADINE HCL [Concomitant]
  9. COENZYME Q10 [Concomitant]
  10. CELEXA [Concomitant]
  11. WELLBUTRIN [Concomitant]
     Dates: start: 20010101
  12. ZETIA [Concomitant]
     Indication: BLOOD CHOLESTEROL INCREASED
  13. ADVICOR [Concomitant]
     Indication: BLOOD CHOLESTEROL INCREASED
  14. REQUIP [Concomitant]
     Indication: PARKINSON'S DISEASE
     Dates: start: 20041101
  15. SINEMET [Concomitant]
     Indication: PARKINSON'S DISEASE
     Dates: start: 20050216

REACTIONS (4)
  - EMOTIONAL DISTRESS [None]
  - HYPERSEXUALITY [None]
  - OBSESSIVE-COMPULSIVE DISORDER [None]
  - PATHOLOGICAL GAMBLING [None]
